FAERS Safety Report 7426450-7 (Version None)
Quarter: 2011Q1

REPORT INFORMATION
  Report Type: 
  Country: None (occurrence: None)
  Receive Date: 20110302
  Receipt Date: 20101129
  Transmission Date: 20110831
  Serious: No
  Sender: FDA-Public Use
  Company Number: 022925

PATIENT
  Sex: Female
  Weight: 86.1 kg

DRUGS (9)
  1. PREDNISONE [Concomitant]
  2. KLOR-CON [Concomitant]
  3. CELEXA [Concomitant]
  4. CIMZIA [Suspect]
     Indication: CROHN'S DISEASE
     Dosage: (400 MG 1X/2 WEEKS SUBCUTANEOUS)
     Route: 058
     Dates: start: 20101111
  5. GABAPENTIN [Concomitant]
  6. ASPIRIN [Concomitant]
  7. PROTONIX [Concomitant]
  8. MESALAMINE [Concomitant]
  9. LASIX [Concomitant]

REACTIONS (4)
  - HYPERSOMNIA [None]
  - NAUSEA [None]
  - MENTAL IMPAIRMENT [None]
  - FATIGUE [None]
